FAERS Safety Report 8286614-X (Version None)
Quarter: 2012Q2

REPORT INFORMATION
  Report Type: 
  Country: None (occurrence: None)
  Receive Date: 20120411
  Receipt Date: 20120327
  Transmission Date: 20120825
  Serious: Yes (Other)
  Sender: FDA-Public Use
  Company Number: 2012MA004394

PATIENT
  Age: 33 Year
  Sex: Male

DRUGS (11)
  1. RIBAVIRIN [Suspect]
     Indication: HEPATITIS
     Dosage: 1200 MG; PO
     Route: 048
     Dates: start: 20110516
  2. CALCICHEW D3 [Concomitant]
  3. MOVIPREP [Concomitant]
  4. CLOZAPINE [Concomitant]
  5. CLOZAPINE [Suspect]
     Dosage: 50 MG; PO
     Route: 048
  6. BECLOMETHASONE DIPROPIONATE [Concomitant]
  7. INTERFERON [Concomitant]
  8. RAMIPRIL [Suspect]
     Indication: HYPERTENSION
     Dosage: 2.5 MG; QD
     Dates: start: 20110822
  9. PEGINTERFERON ALFA-2A [Concomitant]
  10. OMEPRAZOLE [Concomitant]
  11. VENLAFAXINE [Concomitant]

REACTIONS (2)
  - NEUTROPENIA [None]
  - HYPERTENSION [None]
